FAERS Safety Report 8226139-0 (Version None)
Quarter: 2012Q1

REPORT INFORMATION
  Report Type: 
  Country: None (occurrence: None)
  Receive Date: 20120319
  Receipt Date: 20120302
  Transmission Date: 20120608
  Serious: Yes (Life-Threatening)
  Sender: FDA-Public Use
  Company Number: B0785426A

PATIENT
  Sex: Female

DRUGS (6)
  1. ATRACURIUM BESYLATE [Concomitant]
  2. PROPOFOL [Concomitant]
  3. CEFUROXIME SODIUM [Suspect]
     Indication: PROPHYLAXIS
     Dosage: UNK / SINGLE DOSE / INTRAVENOUS
     Route: 042
     Dates: start: 20110609, end: 20110609
  4. SUFENTANIL CITRATE [Concomitant]
  5. SEVOFLURANE [Concomitant]
  6. LEVOCETIRIZINE HCL [Concomitant]

REACTIONS (1)
  - ANAPHYLACTIC SHOCK [None]
